FAERS Safety Report 15431650 (Version 3)
Quarter: 2018Q3

REPORT INFORMATION
  Report Type: Spontaneous
  Country: JP (occurrence: JP)
  Receive Date: 20180926
  Receipt Date: 20180927
  Transmission Date: 20181010
  Serious: Yes (Death)
  Sender: FDA-Public Use
  Company Number: PHHY2018JP101438

PATIENT
  Age: 46 Year
  Sex: Female
  Weight: 58.1 kg

DRUGS (3)
  1. MYCOPHENOLATE MOFETIL. [Suspect]
     Active Substance: MYCOPHENOLATE MOFETIL
     Dosage: 1500 MG, QD
     Route: 065
  2. PREDNISOLONE. [Suspect]
     Active Substance: PREDNISOLONE
     Indication: LUPUS NEPHRITIS
     Dosage: 45 MG, QD
     Route: 065
  3. MYCOPHENOLATE MOFETIL. [Suspect]
     Active Substance: MYCOPHENOLATE MOFETIL
     Indication: LUPUS NEPHRITIS
     Dosage: 500 MG, QD
     Route: 065

REACTIONS (6)
  - Blister [Fatal]
  - Hepatic function abnormal [Fatal]
  - Coagulopathy [Fatal]
  - Varicella zoster virus infection [Fatal]
  - Abdominal pain upper [Fatal]
  - Shock haemorrhagic [Fatal]
